FAERS Safety Report 9316593 (Version 1)
Quarter: 2013Q2

REPORT INFORMATION
  Report Type: Spontaneous
  Country: US (occurrence: US)
  Receive Date: 20130530
  Receipt Date: 20130530
  Transmission Date: 20140414
  Serious: No
  Sender: FDA-Public Use
  Company Number: US-PFIZER INC-2013163470

PATIENT
  Sex: Female

DRUGS (2)
  1. GEODON [Suspect]
     Dosage: 20 MG, UNK
  2. KLONOPIN [Suspect]
     Dosage: 1 MG, UNK

REACTIONS (1)
  - Hypersensitivity [Unknown]
